FAERS Safety Report 4339377-4 (Version None)
Quarter: 2004Q2

REPORT INFORMATION
  Report Type: 
  Country: None (occurrence: None)
  Receive Date: 20040412
  Receipt Date: 20040331
  Transmission Date: 20050107
  Serious: Yes (Other)
  Sender: FDA-Public Use
  Company Number: 2004019704

PATIENT
  Age: 54 Year
  Sex: Female
  Weight: 63.5036 kg

DRUGS (3)
  1. LOPID [Suspect]
     Indication: BLOOD TRIGLYCERIDES
     Dosage: 600 MG (DAILY), ORAL
     Route: 048
     Dates: start: 20031001
  2. ESTRADIOL [Concomitant]
  3. PROPRANOLOL HYDROCHLORIDE (PRORANOLOL HYDROCHLORIDE) [Concomitant]

REACTIONS (2)
  - BLOOD TRIGLYCERIDES INCREASED [None]
  - DRUG INEFFECTIVE [None]
